FAERS Safety Report 8557663-9 (Version None)
Quarter: 2012Q3

REPORT INFORMATION
  Report Type: 
  Country: None (occurrence: None)
  Receive Date: 20120801
  Receipt Date: 20120718
  Transmission Date: 20120928
  Serious: Yes (Other)
  Sender: FDA-Public Use
  Company Number: DE-ELI_LILLY_AND_COMPANY-DE201206006349

PATIENT
  Age: 45 Year
  Sex: Male
  Weight: 78 kg

DRUGS (3)
  1. VITAMIN B COMPLEX CAP [Concomitant]
     Dosage: UNK, QD
  2. OLANZAPINE [Suspect]
     Indication: SCHIZOPHRENIA, PARANOID TYPE
     Dosage: UNK, UNKNOWN
     Route: 030
     Dates: start: 20120605
  3. ATOSIL [Concomitant]
     Dosage: 100 MG, UNKNOWN

REACTIONS (9)
  - PARAESTHESIA [None]
  - FATIGUE [None]
  - HYPOTENSION [None]
  - DISTURBANCE IN ATTENTION [None]
  - SLOW RESPONSE TO STIMULI [None]
  - SOMNOLENCE [None]
  - GAIT DISTURBANCE [None]
  - FEELING ABNORMAL [None]
  - TREMOR [None]
